FAERS Safety Report 7601195-9 (Version None)
Quarter: 2011Q3

REPORT INFORMATION
  Report Type: 
  Country: None (occurrence: None)
  Receive Date: 20110711
  Receipt Date: 20090325
  Transmission Date: 20111222
  Serious: Yes (Hospitalization)
  Sender: FDA-Public Use
  Company Number: FR-GLAXOSMITHKLINE-B0567268A

PATIENT
  Sex: Male

DRUGS (3)
  1. TOPOTECAN [Suspect]
     Indication: NEUROBLASTOMA RECURRENT
     Route: 042
     Dates: start: 20080218
  2. VINCRISTINE [Suspect]
     Indication: NEUROBLASTOMA RECURRENT
     Route: 042
     Dates: start: 20080218
  3. DOXORUBICIN HCL [Suspect]
     Indication: NEUROBLASTOMA RECURRENT
     Route: 042
     Dates: start: 20080218

REACTIONS (4)
  - DEVICE RELATED INFECTION [None]
  - MUCOSAL INFLAMMATION [None]
  - BONE MARROW FAILURE [None]
  - ENTEROBACTER INFECTION [None]
